FAERS Safety Report 9679059 (Version 2)
Quarter: 2013Q4

REPORT INFORMATION
  Report Type: Report from Study
  Country: HU (occurrence: HU)
  Receive Date: 20131108
  Receipt Date: 20131220
  Transmission Date: 20140711
  Serious: Yes (Hospitalization)
  Sender: FDA-Public Use
  Company Number: HU-VERTEX PHARMACEUTICALS INC-2013-010968

PATIENT
  Age: 56 Year
  Sex: Female

DRUGS (1)
  1. INCIVO [Suspect]
     Indication: HEPATITIS C
     Dosage: 1125 MG, UNK
     Route: 048
     Dates: start: 20131030, end: 20131124

REACTIONS (2)
  - Back pain [Unknown]
  - Anosmia [Unknown]
